FAERS Safety Report 10228244 (Version 1)
Quarter: 2014Q2

REPORT INFORMATION
  Report Type: Spontaneous
  Country: US (occurrence: US)
  Receive Date: 20140610
  Receipt Date: 20140610
  Transmission Date: 20141212
  Serious: No
  Sender: FDA-Public Use
  Company Number: US-PFIZER INC-2014156456

PATIENT
  Age: 72 Year
  Sex: Female

DRUGS (1)
  1. LYRICA [Suspect]
     Indication: ARTHRALGIA
     Dosage: 50 MG, UNK
     Dates: start: 20140529

REACTIONS (8)
  - Nausea [Unknown]
  - Dizziness [Unknown]
  - Feeling abnormal [Unknown]
  - Pain [Unknown]
  - Vomiting [Unknown]
  - Gait disturbance [Unknown]
  - Impaired driving ability [Unknown]
  - Hypertension [Unknown]
